FAERS Safety Report 24231320 (Version 1)
Quarter: 2024Q3

REPORT INFORMATION
  Report Type: Spontaneous
  Country: FR (occurrence: FR)
  Receive Date: 20240821
  Receipt Date: 20240821
  Transmission Date: 20241016
  Serious: Yes (Other)
  Sender: ROCHE
  Company Number: None

PATIENT
  Age: 76 Year
  Sex: Male

DRUGS (8)
  1. RITUXIMAB [Suspect]
     Active Substance: RITUXIMAB
     Indication: Monoclonal gammopathy
     Dosage: C1
     Route: 042
     Dates: start: 20240701, end: 20240701
  2. PRISTINAMYCIN [Suspect]
     Active Substance: PRISTINAMYCIN
     Indication: Sinusitis
     Dosage: 500 MG D1 THEN 250 MG/D FOR 3 DAYS
     Route: 048
     Dates: start: 20240708, end: 20240711
  3. XARELTO [Concomitant]
     Active Substance: RIVAROXABAN
     Route: 048
  4. CHONDROITIN (SODIUM SULFATE) [Concomitant]
     Route: 048
  5. DESLORATADINE [Concomitant]
     Active Substance: DESLORATADINE
  6. ENTRESTO [Concomitant]
     Active Substance: SACUBITRIL\VALSARTAN
     Dosage: 1 MORNING AND 1 EVENING
     Route: 048
  7. MOMETASONE [Concomitant]
     Active Substance: MOMETASONE
     Route: 055
  8. BISOPROLOL FUMARATE [Concomitant]
     Active Substance: BISOPROLOL FUMARATE
     Dosage: 2.5 MG IN THE MORNING, 1.25 MG IN THE EVENING
     Route: 048

REACTIONS (1)
  - Deafness bilateral [Recovering/Resolving]

NARRATIVE: CASE EVENT DATE: 20240716
